FAERS Safety Report 24361637 (Version 1)
Quarter: 2024Q3

REPORT INFORMATION
  Report Type: Report from Study
  Country: US (occurrence: US)
  Receive Date: 20240925
  Receipt Date: 20240925
  Transmission Date: 20241017
  Serious: Yes (Hospitalization)
  Sender: ABBVIE
  Company Number: US-ABBVIE-5477587

PATIENT
  Age: 78 Year
  Sex: Male

DRUGS (1)
  1. VENCLEXTA [Suspect]
     Active Substance: VENETOCLAX
     Indication: Waldenstrom^s macroglobulinaemia
     Dosage: TAKE 4 TABLET(S) (400 MG TOTAL) BY MOUTH DAILY,?FORM STRENGTH: 100 MG
     Route: 048
     Dates: start: 202311

REACTIONS (3)
  - Dehydration [Not Recovered/Not Resolved]
  - Off label use [Not Recovered/Not Resolved]
  - Gait inability [Unknown]

NARRATIVE: CASE EVENT DATE: 20231101
